FAERS Safety Report 21269371 (Version 3)
Quarter: 2022Q3

REPORT INFORMATION
  Report Type: Spontaneous
  Country: CN (occurrence: CN)
  Receive Date: 20220830
  Receipt Date: 20220909
  Transmission Date: 20221026
  Serious: Yes (Other)
  Sender: FDA-Public Use
  Company Number: CN-BoehringerIngelheim-2022-BI-189183

PATIENT
  Age: 72 Year
  Sex: Male
  Weight: 55 kg

DRUGS (2)
  1. ALTEPLASE [Suspect]
     Active Substance: ALTEPLASE
     Indication: Thrombolysis
     Dosage: 50MG
     Route: 042
     Dates: start: 20220817, end: 20220817
  2. ALTEPLASE [Suspect]
     Active Substance: ALTEPLASE
     Dosage: IV PUMP FOR 1 HOUR?50MG
     Route: 042
     Dates: start: 20220817, end: 20220817

REACTIONS (3)
  - Petechiae [Recovering/Resolving]
  - Gingival bleeding [Recovering/Resolving]
  - Lividity [Recovering/Resolving]

NARRATIVE: CASE EVENT DATE: 20220817
